FAERS Safety Report 17821341 (Version 1)
Quarter: 2020Q2

REPORT INFORMATION
  Report Type: Report from Study
  Country: IT (occurrence: IT)
  Receive Date: 20200525
  Receipt Date: 20200525
  Transmission Date: 20200714
  Serious: Yes (Hospitalization)
  Sender: FDA-Public Use
  Company Number: IT-AEGERION PHARMACEUTICAL, INC-AEGR004854

PATIENT

DRUGS (1)
  1. MYALEPT [Suspect]
     Active Substance: METRELEPTIN
     Indication: CONGENITAL GENERALISED LIPODYSTROPHY

REACTIONS (3)
  - Weight decreased [Unknown]
  - Gastrointestinal inflammation [Unknown]
  - Decreased appetite [Unknown]
